FAERS Safety Report 14795528 (Version 1)
Quarter: 2018Q2

REPORT INFORMATION
  Report Type: Spontaneous
  Country: ES (occurrence: ES)
  Receive Date: 20180423
  Receipt Date: 20180423
  Transmission Date: 20180711
  Serious: Yes (Hospitalization)
  Sender: FDA-Public Use
  Company Number: ES-ANIPHARMA-2018-ES-000033

PATIENT
  Age: 79 Year
  Sex: Female

DRUGS (7)
  1. TOLTERODINE TARTRATE. [Concomitant]
     Active Substance: TOLTERODINE TARTRATE
  2. CALCIFEDIOL [Concomitant]
     Active Substance: CALCIFEDIOL
  3. TELMISARTAN. [Concomitant]
     Active Substance: TELMISARTAN
  4. TORASEMIDE [Concomitant]
     Active Substance: TORSEMIDE
  5. IRON [Concomitant]
     Active Substance: IRON
     Route: 048
  6. CEFUROXIME AXETIL (NON-SPECIFIC) [Suspect]
     Active Substance: CEFUROXIME AXETIL
     Route: 048
  7. OMEPRAZOLE. [Concomitant]
     Active Substance: OMEPRAZOLE

REACTIONS (1)
  - Status epilepticus [Recovered/Resolved]
